FAERS Safety Report 24674566 (Version 1)
Quarter: 2024Q4

REPORT INFORMATION
  Report Type: Spontaneous
  Country: NL (occurrence: NL)
  Receive Date: 20241128
  Receipt Date: 20241128
  Transmission Date: 20250115
  Serious: Yes (Other)
  Sender: TEVA
  Company Number: None

PATIENT
  Age: 58 Year
  Sex: Male
  Weight: 131 kg

DRUGS (1)
  1. CLINDAMYCIN [Suspect]
     Active Substance: CLINDAMYCIN
     Indication: Inflammation
     Dosage: 2 CAPSULES 3 TIMES A DAY ; BRAND NAME NOT SPECIFIED
     Route: 048
     Dates: start: 20241008, end: 20241017

REACTIONS (1)
  - Pemphigus [Recovered/Resolved]
